FAERS Safety Report 6301481-9 (Version None)
Quarter: 2009Q3

REPORT INFORMATION
  Report Type: 
  Country: None (occurrence: None)
  Receive Date: 20090807
  Receipt Date: 20090730
  Transmission Date: 20100115
  Serious: Yes (Disabling)
  Sender: FDA-Public Use
  Company Number: A0800774A

PATIENT
  Age: 19 Year
  Sex: Female

DRUGS (1)
  1. LAMICTAL [Suspect]
     Indication: EPILEPSY
     Dosage: 600U UNKNOWN
     Route: 048

REACTIONS (4)
  - ABNORMAL SENSATION IN EYE [None]
  - BALANCE DISORDER [None]
  - EYE ROLLING [None]
  - VISION BLURRED [None]
